FAERS Safety Report 25388795 (Version 3)
Quarter: 2025Q3

REPORT INFORMATION
  Report Type: Report from Study
  Country: EU (occurrence: EU)
  Receive Date: 20250603
  Receipt Date: 20250909
  Transmission Date: 20251020
  Serious: Yes (Death, Other)
  Sender: TAKEDA
  Company Number: EU-TAKEDA-2025TUS051318

PATIENT
  Sex: Female

DRUGS (2)
  1. FRUQUINTINIB [Suspect]
     Active Substance: FRUQUINTINIB
     Indication: Colorectal cancer metastatic
  2. FRUQUINTINIB [Suspect]
     Active Substance: FRUQUINTINIB
     Dates: start: 20241212, end: 20241212

REACTIONS (2)
  - Metastases to central nervous system [Fatal]
  - Brain herniation [Fatal]
